FAERS Safety Report 23418204 (Version 31)
Quarter: 2025Q3

REPORT INFORMATION
  Report Type: Report from Study
  Country: EU (occurrence: EU)
  Receive Date: 20240118
  Receipt Date: 20250903
  Transmission Date: 20251020
  Serious: Yes (Hospitalization, Other)
  Sender: TAKEDA
  Company Number: EU-TAKEDA-2024TUS004725

PATIENT
  Age: 65 Year
  Sex: Male

DRUGS (22)
  1. TEDUGLUTIDE [Suspect]
     Active Substance: TEDUGLUTIDE
     Indication: Short-bowel syndrome
     Dosage: 0.16 MILLILITER, QD
  2. TEDUGLUTIDE [Suspect]
     Active Substance: TEDUGLUTIDE
     Dosage: 0.08 MILLILITER, QD
  3. TEDUGLUTIDE [Suspect]
     Active Substance: TEDUGLUTIDE
     Dosage: 0.1 MILLILITER, QD
  4. TEDUGLUTIDE [Suspect]
     Active Substance: TEDUGLUTIDE
     Dosage: 0.1 MILLILITER, QD
  5. TEDUGLUTIDE [Suspect]
     Active Substance: TEDUGLUTIDE
     Dosage: 0.14 MILLILITER, QD
  6. TEDUGLUTIDE [Suspect]
     Active Substance: TEDUGLUTIDE
     Dosage: 0.14 MILLILITER, QD
  7. TEDUGLUTIDE [Suspect]
     Active Substance: TEDUGLUTIDE
     Dosage: 0.15 MILLILITER, QD
     Dates: start: 20231215
  8. TEDUGLUTIDE [Suspect]
     Active Substance: TEDUGLUTIDE
     Dosage: 0.14 MILLILITER, QD
  9. TEDUGLUTIDE [Suspect]
     Active Substance: TEDUGLUTIDE
     Dosage: 0.16 MILLILITER, QD
     Dates: start: 20240715
  10. TEDUGLUTIDE [Suspect]
     Active Substance: TEDUGLUTIDE
     Dosage: 0.16 MILLILITER, QD
  11. TEDUGLUTIDE [Suspect]
     Active Substance: TEDUGLUTIDE
     Dosage: 0.1 MILLILITER, QD
  12. TEDUGLUTIDE [Suspect]
     Active Substance: TEDUGLUTIDE
     Dosage: 0.16 MILLILITER, QD
  13. TEDUGLUTIDE [Suspect]
     Active Substance: TEDUGLUTIDE
     Dosage: 0.10 MILLILITER, QD
  14. TEDUGLUTIDE [Suspect]
     Active Substance: TEDUGLUTIDE
     Dosage: 0.1 MILLILITER, QD
  15. TEDUGLUTIDE [Suspect]
     Active Substance: TEDUGLUTIDE
     Dosage: 0.12 MILLILITER, QD
  16. TEDUGLUTIDE [Suspect]
     Active Substance: TEDUGLUTIDE
  17. TEDUGLUTIDE [Suspect]
     Active Substance: TEDUGLUTIDE
     Dosage: 0.15 MILLILITER, QD
  18. TEDUGLUTIDE [Suspect]
     Active Substance: TEDUGLUTIDE
     Dosage: 0.15 MILLILITER, QD
  19. TEDUGLUTIDE [Suspect]
     Active Substance: TEDUGLUTIDE
  20. TEDUGLUTIDE [Suspect]
     Active Substance: TEDUGLUTIDE
     Dosage: 0.15 MILLILITER, QD
  21. TEDUGLUTIDE [Suspect]
     Active Substance: TEDUGLUTIDE
  22. TEDUGLUTIDE [Suspect]
     Active Substance: TEDUGLUTIDE

REACTIONS (39)
  - Neuropathy peripheral [Not Recovered/Not Resolved]
  - Ascites [Recovered/Resolved]
  - Stoma site haemorrhage [Recovered/Resolved]
  - Urethral stenosis [Not Recovered/Not Resolved]
  - Dysbiosis [Recovered/Resolved with Sequelae]
  - Change of bowel habit [Recovered/Resolved with Sequelae]
  - Urinary tract infection [Not Recovered/Not Resolved]
  - Agitation [Recovered/Resolved with Sequelae]
  - Syncope [Recovered/Resolved]
  - Anaemia [Recovering/Resolving]
  - Catheter site inflammation [Recovered/Resolved]
  - Hydronephrosis [Unknown]
  - Abdominal pain [Recovered/Resolved]
  - Intestinal obstruction [Recovered/Resolved]
  - Abdominal distension [Recovering/Resolving]
  - Pain [Unknown]
  - Illness [Unknown]
  - Fatigue [Not Recovered/Not Resolved]
  - Asthenia [Recovering/Resolving]
  - Abdominal rigidity [Unknown]
  - Gastrointestinal pain [Recovering/Resolving]
  - Pain in extremity [Not Recovered/Not Resolved]
  - Strangury [Not Recovered/Not Resolved]
  - Chromaturia [Not Recovered/Not Resolved]
  - Intentional product use issue [Not Recovered/Not Resolved]
  - Incorrect dose administered [Recovered/Resolved]
  - Haematuria [Not Recovered/Not Resolved]
  - Abdominal discomfort [Recovered/Resolved]
  - Micturition disorder [Not Recovered/Not Resolved]
  - Hypervolaemia [Recovered/Resolved]
  - Hypomagnesaemia [Recovering/Resolving]
  - Product dose omission issue [Recovered/Resolved]
  - Vitamin D deficiency [Recovering/Resolving]
  - Proctalgia [Recovered/Resolved]
  - Pelvic pain [Recovered/Resolved]
  - Blood uric acid increased [Unknown]
  - Weight increased [Unknown]
  - Constipation [Recovered/Resolved]
  - Nausea [Not Recovered/Not Resolved]

NARRATIVE: CASE EVENT DATE: 20240101
